FAERS Safety Report 15152257 (Version 1)
Quarter: 2018Q3

REPORT INFORMATION
  Report Type: Spontaneous
  Country: US (occurrence: US)
  Receive Date: 20180717
  Receipt Date: 20180717
  Transmission Date: 20181010
  Serious: No
  Sender: FDA-Public Use
  Company Number: US-009507513-1807USA005705

PATIENT
  Age: 24 Year
  Sex: Female
  Weight: 54.42 kg

DRUGS (1)
  1. NEXPLANON [Suspect]
     Active Substance: ETONOGESTREL
     Indication: CONTRACEPTION
     Dosage: 1 DF, 3 YEARS IMPLANT LEFT ARM
     Route: 059
     Dates: start: 20160711

REACTIONS (2)
  - Ovarian mass [Unknown]
  - Breast mass [Unknown]

NARRATIVE: CASE EVENT DATE: 201806
